FAERS Safety Report 8494343-2 (Version None)
Quarter: 2012Q3

REPORT INFORMATION
  Report Type: 
  Country: None (occurrence: None)
  Receive Date: 20120709
  Receipt Date: 20120629
  Transmission Date: 20120928
  Serious: Yes (Other)
  Sender: FDA-Public Use
  Company Number: GB-US-EMD SERONO, INC.-7144449

PATIENT

DRUGS (7)
  1. DDAZP (DDAVP) [Concomitant]
     Indication: PRODUCT USED FOR UNKNOWN INDICATION
  2. HYDROCORTISONE [Concomitant]
     Indication: PRODUCT USED FOR UNKNOWN INDICATION
  3. LEVOTHYROXINE SODIUM [Concomitant]
     Indication: PRODUCT USED FOR UNKNOWN INDICATION
  4. SODIUM VALTRATE (SODIUM VALERATE) [Concomitant]
     Indication: PRODUCT USED FOR UNKNOWN INDICATION
  5. RENITIDINE (RANITIDINE) [Concomitant]
     Indication: PRODUCT USED FOR UNKNOWN INDICATION
  6. SAIZEN [Suspect]
     Indication: PRODUCT USED FOR UNKNOWN INDICATION
     Dates: start: 20110101
  7. DONPERIDONE (DOMPERIDONE) [Concomitant]
     Indication: PRODUCT USED FOR UNKNOWN INDICATION

REACTIONS (5)
  - LOSS OF CONSCIOUSNESS [None]
  - MALAISE [None]
  - LETHARGY [None]
  - PERSONALITY DISORDER [None]
  - NASOPHARYNGITIS [None]
